FAERS Safety Report 22252907 (Version 1)
Quarter: 2023Q2

REPORT INFORMATION
  Report Type: Spontaneous
  Country: GB (occurrence: GB)
  Receive Date: 20230426
  Receipt Date: 20230426
  Transmission Date: 20230721
  Serious: Yes (Other)
  Sender: FDA-Public Use
  Company Number: GB-MHRA-MED-202304142044551620-TBLGV

PATIENT
  Age: 42 Year
  Sex: Female
  Weight: 55 kg

DRUGS (1)
  1. CLARITHROMYCIN [Suspect]
     Active Substance: CLARITHROMYCIN
     Indication: Pharyngitis
     Dosage: 1000 MILLIGRAM DAILY; 500MG 2X A DAY
     Route: 065
     Dates: start: 20230406, end: 20230408

REACTIONS (6)
  - Heart rate [Recovered/Resolved]
  - Panic attack [Recovered/Resolved]
  - Anxiety [Recovered/Resolved]
  - Dyspnoea [Recovered/Resolved]
  - Nightmare [Recovered/Resolved]
  - Headache [Recovered/Resolved]

NARRATIVE: CASE EVENT DATE: 20230406
